FAERS Safety Report 6634056-2 (Version None)
Quarter: 2010Q1

REPORT INFORMATION
  Report Type: 
  Country: None (occurrence: None)
  Receive Date: 20100315
  Receipt Date: 20100311
  Transmission Date: 20100710
  Serious: Yes (Death, Life-Threatening, Other)
  Sender: FDA-Public Use
  Company Number: PHHY2009FR52588

PATIENT
  Sex: Female

DRUGS (13)
  1. TAREG [Suspect]
     Dosage: 40 MG, QD
     Dates: start: 20091117, end: 20091118
  2. CORTICOSTEROIDS [Concomitant]
     Indication: MYOCARDITIS
     Dosage: 1 MG/KG/DAY
     Dates: start: 20091113
  3. ZANAMIVIR [Concomitant]
     Indication: INFLUENZA
     Dosage: 250 MG, BID
     Route: 042
     Dates: start: 20091114, end: 20091117
  4. ASPIRIN [Concomitant]
  5. DOBUTAMINE [Concomitant]
     Indication: CARDIAC INDEX
  6. DOPAMINE HCL [Concomitant]
     Indication: CARDIAC INDEX
  7. TIENAM [Concomitant]
  8. VANCOMYCIN [Concomitant]
  9. AMIKIN [Concomitant]
  10. LEVOTHYROX [Concomitant]
  11. LOVENOX [Concomitant]
  12. DOLIPRANE [Concomitant]
     Dosage: AS NEEDED
  13. TAMIFLU [Concomitant]

REACTIONS (37)
  - ACUTE HEPATIC FAILURE [None]
  - AGITATION [None]
  - ANURIA [None]
  - ANXIETY [None]
  - ASCITES [None]
  - BLOOD LACTATE DEHYDROGENASE INCREASED [None]
  - BONE MARROW FAILURE [None]
  - BRAIN HERNIATION [None]
  - CARDIAC FAILURE [None]
  - CARDIOGENIC SHOCK [None]
  - CELL DEATH [None]
  - CHOLESTASIS [None]
  - CIRCULATORY COLLAPSE [None]
  - GASTRIC MUCOSAL LESION [None]
  - HAEMATOMA [None]
  - HAEMODYNAMIC INSTABILITY [None]
  - HAEMOGLOBIN DECREASED [None]
  - HAEMORRHAGIC CEREBRAL INFARCTION [None]
  - HAEMORRHAGIC STROKE [None]
  - HERPES SIMPLEX HEPATITIS [None]
  - HYPERTENSION [None]
  - HYPOCAPNIA [None]
  - HYPOREFLEXIA [None]
  - HYPOTENSION [None]
  - ISCHAEMIC HEPATITIS [None]
  - ISCHAEMIC STROKE [None]
  - MULTI-ORGAN FAILURE [None]
  - MYOCARDITIS [None]
  - PROTHROMBIN TIME SHORTENED [None]
  - RENAL FAILURE [None]
  - RESPIRATORY DISTRESS [None]
  - SEPTIC SHOCK [None]
  - SHOCK [None]
  - SOMNOLENCE [None]
  - TACHYCARDIA [None]
  - TACHYPNOEA [None]
  - THROMBOTIC MICROANGIOPATHY [None]
